FAERS Safety Report 4600822-8 (Version None)
Quarter: 2005Q1

REPORT INFORMATION
  Report Type: 
  Country: None (occurrence: None)
  Receive Date: 20050127
  Receipt Date: 20041110
  Transmission Date: 20050727
  Serious: No
  Sender: FDA-Public Use
  Company Number: USA041183718

PATIENT
  Age: 9 Year
  Sex: Male
  Weight: 44 kg

DRUGS (1)
  1. STRATTERA [Suspect]
     Indication: ATTENTION DEFICIT/HYPERACTIVITY DISORDER
     Dosage: 40 MG IN THE EVENING
     Dates: start: 20031101, end: 20041102

REACTIONS (7)
  - ANGER [None]
  - APHASIA [None]
  - CRYING [None]
  - DISTURBANCE IN ATTENTION [None]
  - MEMORY IMPAIRMENT [None]
  - STARING [None]
  - TIC [None]
